FAERS Safety Report 23896851 (Version 1)
Quarter: 2024Q2

REPORT INFORMATION
  Report Type: Spontaneous
  Country: US (occurrence: US)
  Receive Date: 20240524
  Receipt Date: 20240524
  Transmission Date: 20240715
  Serious: Yes (Death)
  Sender: FDA-Public Use
  Company Number: US-AMGEN-USASP2024099545

PATIENT

DRUGS (8)
  1. FILGRASTIM [Suspect]
     Active Substance: FILGRASTIM
     Indication: Prophylaxis
     Dosage: UNK, QD (D 0-5 AT EITHER 300 MCG/D ADULTS {76 KG OR 480 MCG/D ADULTS MORE THAN OF EQUAL TO 76 KG)
     Route: 058
  2. MITOXANTRONE [Suspect]
     Active Substance: MITOXANTRONE HYDROCHLORIDE
     Indication: Plasma cell myeloma refractory
     Dosage: 16 MILLIGRAM/SQ. METER, QD (ON DAYS 1-3)
     Route: 065
  3. CYTARABINE [Suspect]
     Active Substance: CYTARABINE
     Indication: Plasma cell myeloma refractory
     Dosage: 2 GRAM PER SQUARE METRE, QD (DAYS1-2)
     Route: 042
  4. CLADRIBINE [Suspect]
     Active Substance: CLADRIBINE
     Indication: Plasma cell myeloma refractory
     Dosage: 5 MILLIGRAM/SQ. METER, QD (DAYS 1-5)
     Route: 042
  5. FLUDARABINE [Concomitant]
     Active Substance: FLUDARABINE PHOSPHATE
     Dosage: UNK
  6. MELPHALAN [Concomitant]
     Active Substance: MELPHALAN
     Dosage: UNK
  7. CYCLOSPORINE [Concomitant]
     Active Substance: CYCLOSPORINE
     Indication: Prophylaxis
     Dosage: UNK
  8. MYCOPHENOLATE MOFETIL [Concomitant]
     Active Substance: MYCOPHENOLATE MOFETIL
     Indication: Prophylaxis
     Dosage: UNK

REACTIONS (1)
  - Pulmonary alveolar haemorrhage [Fatal]
